FAERS Safety Report 18302415 (Version 2)
Quarter: 2020Q4

REPORT INFORMATION
  Report Type: Spontaneous
  Country: FR (occurrence: FR)
  Receive Date: 20200923
  Receipt Date: 20201009
  Transmission Date: 20210113
  Serious: Yes (Hospitalization)
  Sender: FDA-Public Use
  Company Number: FR-JNJFOC-20200924614

PATIENT
  Age: 82 Year
  Sex: Male
  Weight: 75.8 kg

DRUGS (18)
  1. DUROGESIC [Suspect]
     Active Substance: FENTANYL
     Indication: PAIN
     Route: 065
     Dates: start: 20200730, end: 20200812
  2. MEROPENEM. [Suspect]
     Active Substance: MEROPENEM
     Indication: LUNG DISORDER
     Route: 042
     Dates: start: 20200804
  3. ATENOLOL. [Concomitant]
     Active Substance: ATENOLOL
  4. ULTIBRO BREEZHALER [Concomitant]
     Active Substance: GLYCOPYRRONIUM\INDACATEROL
  5. TARDYFERON [Concomitant]
     Active Substance: FERROUS SULFATE
  6. ATORVASTATINE [Concomitant]
     Active Substance: ATORVASTATIN
  7. ALFUZOSINE (CHLORHYDRATE D^) [Concomitant]
     Active Substance: ALFUZOSIN HYDROCHLORIDE
  8. SPIRIVA [Concomitant]
     Active Substance: TIOTROPIUM BROMIDE MONOHYDRATE
  9. MOVICOL [Concomitant]
     Active Substance: POLYETHYLENE GLYCOL 3350\POTASSIUM CHLORIDE\SODIUM BICARBONATE\SODIUM CHLORIDE
  10. BACTRIM [Suspect]
     Active Substance: SULFAMETHOXAZOLE\TRIMETHOPRIM
     Indication: LUNG DISORDER
     Route: 042
     Dates: start: 20200804, end: 20200813
  11. PREGABALINE [Concomitant]
     Active Substance: PREGABALIN
  12. DIFFU K [Concomitant]
     Active Substance: POTASSIUM CHLORIDE
  13. BRIMONIDINE [Concomitant]
     Active Substance: BRIMONIDINE TARTRATE
  14. PARACETAMOL [Concomitant]
     Active Substance: ACETAMINOPHEN
  15. BUDESONIDE. [Concomitant]
     Active Substance: BUDESONIDE
  16. INNOHEP [Concomitant]
     Active Substance: TINZAPARIN SODIUM
  17. CLONAZEPAM. [Concomitant]
     Active Substance: CLONAZEPAM
  18. FUROSEMIDE. [Concomitant]
     Active Substance: FUROSEMIDE

REACTIONS (1)
  - Disturbance in attention [Recovered/Resolved]

NARRATIVE: CASE EVENT DATE: 20200811
